FAERS Safety Report 5697172-8 (Version None)
Quarter: 2008Q2

REPORT INFORMATION
  Report Type: 
  Country: None (occurrence: None)
  Receive Date: 20080408
  Receipt Date: 20080327
  Transmission Date: 20081010
  Serious: Yes (Other)
  Sender: FDA-Public Use
  Company Number: CH-WYE-H03455408

PATIENT
  Age: 67 Year
  Sex: Male

DRUGS (8)
  1. CORDARONE [Suspect]
     Indication: ATRIAL FIBRILLATION
     Route: 065
     Dates: start: 20060927
  2. CORDARONE [Suspect]
     Indication: ATRIAL FLUTTER
  3. AVANDIA [Concomitant]
     Indication: DIABETES MELLITUS
     Route: 048
  4. ALLOPURINOL [Concomitant]
     Route: 048
  5. TOREM [Concomitant]
     Indication: CARDIAC FAILURE
     Route: 048
  6. ZESTORETIC [Concomitant]
     Indication: SECONDARY HYPERTENSION
     Dosage: 0.5 (UNITS NOT PROVIDED)/DAILY
     Route: 048
  7. CLARITHROMYCIN [Suspect]
     Indication: RESPIRATORY TRACT INFECTION
     Route: 048
     Dates: start: 20080112, end: 20080123
  8. ZOCOR [Concomitant]
     Indication: HYPERLIPIDAEMIA
     Route: 048

REACTIONS (3)
  - BLOOD CREATININE INCREASED [None]
  - BRADYCARDIA [None]
  - DRUG INTERACTION [None]
